FAERS Safety Report 18195144 (Version 1)
Quarter: 2020Q3

REPORT INFORMATION
  Report Type: Spontaneous
  Country: GB (occurrence: GB)
  Receive Date: 20200826
  Receipt Date: 20200826
  Transmission Date: 20201103
  Serious: Yes (Life-Threatening, Disabling)
  Sender: FDA-Public Use
  Company Number: GB-009507513-2008GBR011888

PATIENT
  Age: 69 Year
  Sex: Male
  Weight: 129 kg

DRUGS (16)
  1. TAMSULOSIN HYDROCHLORIDE. [Concomitant]
     Active Substance: TAMSULOSIN HYDROCHLORIDE
  2. GABAPENTIN. [Concomitant]
     Active Substance: GABAPENTIN
  3. FINASTERIDE. [Concomitant]
     Active Substance: FINASTERIDE
  4. SPIRONOLACTONE. [Concomitant]
     Active Substance: SPIRONOLACTONE
  5. BISOPROLOL [Concomitant]
     Active Substance: BISOPROLOL
  6. SERTRALINE HYDROCHLORIDE. [Concomitant]
     Active Substance: SERTRALINE HYDROCHLORIDE
  7. GLIMEPIRIDE. [Concomitant]
     Active Substance: GLIMEPIRIDE
  8. LACTULOSE. [Concomitant]
     Active Substance: LACTULOSE
  9. APIXABAN [Concomitant]
     Active Substance: APIXABAN
  10. SITAGLIPTIN PHOSPHATE [Suspect]
     Active Substance: SITAGLIPTIN PHOSPHATE
     Indication: TYPE 2 DIABETES MELLITUS
     Dosage: MOSTLY 50MG DAILY UP UNTIL LAST 2 MONTHS REDUCED TO 25MG DAILY
     Route: 048
     Dates: start: 20170619, end: 20200518
  11. FORCEVAL [Concomitant]
     Active Substance: FOLIC ACID\IRON\MINERALS\VITAMINS
  12. RALTITREXED [Suspect]
     Active Substance: RALTITREXED
  13. FUROSEMIDE. [Concomitant]
     Active Substance: FUROSEMIDE
  14. TEGRETOL XR [Concomitant]
     Active Substance: CARBAMAZEPINE
  15. RISPERIDONE. [Concomitant]
     Active Substance: RISPERIDONE
  16. LANSOPRAZOLE. [Concomitant]
     Active Substance: LANSOPRAZOLE

REACTIONS (3)
  - Condition aggravated [Unknown]
  - Dyspnoea [Unknown]
  - Pulmonary fibrosis [Not Recovered/Not Resolved]

NARRATIVE: CASE EVENT DATE: 20191010
